FAERS Safety Report 7259511-6 (Version None)
Quarter: 2011Q1

REPORT INFORMATION
  Report Type: 
  Country: None (occurrence: None)
  Receive Date: 20110129
  Receipt Date: 20100331
  Transmission Date: 20110831
  Serious: No
  Sender: FDA-Public Use
  Company Number: US-PFIZER INC-2010042211

PATIENT
  Sex: Female
  Weight: 72.562 kg

DRUGS (5)
  1. RELPAX [Suspect]
     Indication: MIGRAINE
     Dosage: 20 MG, AS NEEDED
     Route: 048
     Dates: start: 20100122
  2. FEMARA [Concomitant]
     Indication: BREAST LUMP REMOVAL
     Dosage: UNK
  3. ALPRAZOLAM [Concomitant]
     Dosage: UNK
  4. FLUOXETINE HYDROCHLORIDE [Concomitant]
     Indication: DEPRESSION
     Dosage: 20 MG, 1X/DAY
  5. AMBIEN [Concomitant]
     Indication: SLEEP DISORDER
     Dosage: UNK

REACTIONS (1)
  - DRUG INEFFECTIVE [None]
